FAERS Safety Report 15320478 (Version 1)
Quarter: 2018Q3

REPORT INFORMATION
  Report Type: Spontaneous
  Country: GB (occurrence: GB)
  Receive Date: 20180827
  Receipt Date: 20180827
  Transmission Date: 20181010
  Serious: Yes (Death)
  Sender: FDA-Public Use
  Company Number: GB-BAYER-2018-159509

PATIENT
  Age: 82 Year
  Sex: Female

DRUGS (13)
  1. BUMETANIDE. [Concomitant]
     Active Substance: BUMETANIDE
     Dosage: 3 MG, BID
  2. METOLAZONE. [Concomitant]
     Active Substance: METOLAZONE
     Dosage: 2.5 MG, OW
  3. PHENYTOIN. [Concomitant]
     Active Substance: PHENYTOIN
     Dosage: 100 NG, TID
  4. PARACETAMOL [Concomitant]
     Active Substance: ACETAMINOPHEN
     Dosage: 1 G, PRN
  5. PHENOBARBITAL. [Concomitant]
     Active Substance: PHENOBARBITAL
     Dosage: 15 MG, BID
  6. ATORVASTATIN [Concomitant]
     Active Substance: ATORVASTATIN
     Dosage: 20 MG, QD
  7. ADEMPAS [Suspect]
     Active Substance: RIOCIGUAT
     Indication: PULMONARY HYPERTENSION
     Dosage: 2.5 MG, TID
  8. WARFARIN [Concomitant]
     Active Substance: WARFARIN
  9. RAMIPRIL. [Concomitant]
     Active Substance: RAMIPRIL
     Dosage: 1.25 MG, QD
  10. OMEPRAZOLE. [Concomitant]
     Active Substance: OMEPRAZOLE
     Dosage: 40 MG, QD
  11. ADCAL D3 [Concomitant]
     Active Substance: CALCIUM CARBONATE\CHOLECALCIFEROL
     Dosage: 1 DF, QD
  12. PRIMIDONE. [Concomitant]
     Active Substance: PRIMIDONE
     Dosage: 250 MG, BID
  13. SALBUTAMOL [Concomitant]
     Active Substance: ALBUTEROL
     Dosage: 2.5 MG, UNK
     Route: 045

REACTIONS (1)
  - Death [Fatal]

NARRATIVE: CASE EVENT DATE: 20180406
